FAERS Safety Report 17451403 (Version 4)
Quarter: 2022Q2

REPORT INFORMATION
  Report Type: Spontaneous
  Country: US (occurrence: US)
  Receive Date: 20200224
  Receipt Date: 20220510
  Transmission Date: 20220720
  Serious: No
  Sender: FDA-Public Use
  Company Number: US-PFIZER INC-2020078917

PATIENT
  Age: 77 Year
  Sex: Female
  Weight: 60.33 kg

DRUGS (1)
  1. TOVIAZ [Suspect]
     Active Substance: FESOTERODINE FUMARATE
     Indication: Urinary incontinence
     Dosage: 4 MG, 1X/DAY
     Route: 048

REACTIONS (2)
  - Feeling abnormal [Unknown]
  - Dysstasia [Unknown]
